FAERS Safety Report 5378734-4 (Version None)
Quarter: 2007Q3

REPORT INFORMATION
  Report Type: 
  Country: None (occurrence: None)
  Receive Date: 20070705
  Receipt Date: 20070629
  Transmission Date: 20080115
  Serious: Yes (Hospitalization)
  Sender: FDA-Public Use
  Company Number: B0476255A

PATIENT
  Age: 74 Year
  Sex: Female

DRUGS (11)
  1. PAXIL [Suspect]
     Indication: DEPRESSION
     Dosage: 10MG PER DAY
     Route: 048
     Dates: start: 20070526, end: 20070601
  2. GASMOTIN [Suspect]
     Indication: DRUG USE FOR UNKNOWN INDICATION
     Dosage: 15MG THREE TIMES PER DAY
     Route: 048
     Dates: start: 20070526, end: 20070601
  3. MUCOSOLVAN [Concomitant]
     Indication: LUNG NEOPLASM MALIGNANT
     Dosage: 135MG PER DAY
     Route: 048
     Dates: start: 20061011
  4. MUCODYNE [Concomitant]
     Indication: LUNG NEOPLASM MALIGNANT
     Dosage: 2250MG PER DAY
     Route: 048
     Dates: start: 20061011
  5. COMELIAN [Concomitant]
     Indication: ANGINA PECTORIS
     Dosage: 400MG PER DAY
     Route: 048
     Dates: start: 19800904
  6. DIHYDERGOT [Concomitant]
     Indication: ORTHOSTATIC HYPOTENSION
     Dosage: 4MG PER DAY
     Route: 048
     Dates: start: 19970708
  7. INDERAL [Concomitant]
     Indication: TACHYCARDIA
     Dosage: 40MG PER DAY
     Route: 048
     Dates: start: 19970101
  8. SUCRALFATE [Concomitant]
     Indication: GASTRITIS
     Dosage: 2.4G PER DAY
     Route: 048
  9. MARZULENE S [Concomitant]
     Indication: GASTRITIS
     Dosage: 2G PER DAY
     Route: 048
     Dates: start: 20010112
  10. DEPAS [Concomitant]
     Indication: ANXIETY DISORDER
     Dosage: 1MG PER DAY
     Route: 048
     Dates: start: 20040109
  11. RHYTHMY [Concomitant]
     Indication: INSOMNIA
     Dosage: 1MG PER DAY
     Route: 048
     Dates: start: 20060731

REACTIONS (6)
  - ALTERED STATE OF CONSCIOUSNESS [None]
  - CONVULSION [None]
  - DISORIENTATION [None]
  - HYPONATRAEMIA [None]
  - INAPPROPRIATE ANTIDIURETIC HORMONE SECRETION [None]
  - MALAISE [None]
